FAERS Safety Report 4593977-5 (Version None)
Quarter: 2005Q1

REPORT INFORMATION
  Report Type: 
  Country: None (occurrence: None)
  Receive Date: 20050218
  Receipt Date: 20050211
  Transmission Date: 20050727
  Serious: Yes (Hospitalization)
  Sender: FDA-Public Use
  Company Number: 200510333GDS

PATIENT
  Age: 80 Year
  Sex: Female

DRUGS (4)
  1. ASPIRIN [Suspect]
     Indication: ACUTE MYOCARDIAL INFARCTION
     Dosage: 100 MG, QD, ORAL
     Route: 048
     Dates: start: 20050128, end: 20050129
  2. ENOXAPARIN SODIUM [Suspect]
     Indication: ACUTE MYOCARDIAL INFARCTION
     Dosage: 20000 IU, QD
     Dates: start: 20050128
  3. PLAVIX [Suspect]
     Indication: ACUTE MYOCARDIAL INFARCTION
     Dosage: 300 MG, TOTAL DAILY, ORAL
     Route: 048
     Dates: start: 20050128, end: 20050129
  4. REOPRO [Concomitant]

REACTIONS (1)
  - THROMBOCYTOPENIA [None]
